FAERS Safety Report 9527931 (Version 1)
Quarter: 2013Q3

REPORT INFORMATION
  Report Type: Spontaneous
  Country: US (occurrence: US)
  Receive Date: 20130917
  Receipt Date: 20130917
  Transmission Date: 20140515
  Serious: No
  Sender: FDA-Public Use
  Company Number: US-PFIZER INC-2013267041

PATIENT
  Age: 34 Year
  Sex: Male
  Weight: 86.17 kg

DRUGS (4)
  1. NEURONTIN [Suspect]
     Indication: ANXIETY
     Dosage: 1300 MG, 1X/DAY
     Dates: start: 2005
  2. NEURONTIN [Suspect]
     Indication: DEPRESSION
  3. LYRICA [Suspect]
     Indication: ANXIETY
     Dosage: 150 MG, 2X/DAY
     Route: 048
     Dates: start: 2013, end: 201309
  4. LYRICA [Suspect]
     Indication: DEPRESSION

REACTIONS (3)
  - Off label use [Unknown]
  - Drug ineffective for unapproved indication [Unknown]
  - Fatigue [Recovered/Resolved]
